FAERS Safety Report 12573549 (Version 1)
Quarter: 2016Q3

REPORT INFORMATION
  Report Type: Spontaneous
  Country: US (occurrence: None)
  Receive Date: 20160719
  Receipt Date: 20160719
  Transmission Date: 20161109
  Serious: No
  Sender: FDA-Public Use
  Company Number: None

PATIENT
  Age: 84 Year
  Sex: Male

DRUGS (2)
  1. PROVIGIL [Suspect]
     Active Substance: MODAFINIL
     Indication: SOMNOLENCE
     Route: 048
     Dates: start: 20160524, end: 20160524
  2. PROVIGIL [Suspect]
     Active Substance: MODAFINIL
     Indication: PARKINSON^S DISEASE
     Route: 048
     Dates: start: 20160524, end: 20160524

REACTIONS (7)
  - Abnormal behaviour [None]
  - Fall [None]
  - Fatigue [None]
  - Gait disturbance [None]
  - Speech disorder [None]
  - Wrong technique in product usage process [None]
  - Feeling abnormal [None]

NARRATIVE: CASE EVENT DATE: 20160524
